FAERS Safety Report 14225481 (Version 1)
Quarter: 2017Q4

REPORT INFORMATION
  Report Type: Spontaneous
  Country: US (occurrence: US)
  Receive Date: 20171126
  Receipt Date: 20171126
  Transmission Date: 20180321
  Serious: Yes (Other)
  Sender: FDA-Public Use
  Company Number: None

PATIENT
  Sex: Male
  Weight: 66.15 kg

DRUGS (1)
  1. INVEGA SUSTENNA [Suspect]
     Active Substance: PALIPERIDONE PALMITATE
     Indication: PSYCHOTIC DISORDER
     Dosage: ?          OTHER FREQUENCY:ONCE A MONTH;?
     Route: 030

REACTIONS (6)
  - Memory impairment [None]
  - Wrong technique in product usage process [None]
  - Depression [None]
  - Akathisia [None]
  - Mood swings [None]
  - Unevaluable event [None]

NARRATIVE: CASE EVENT DATE: 20170817
